FAERS Safety Report 9146682 (Version 1)
Quarter: 2013Q1

REPORT INFORMATION
  Report Type: Spontaneous
  Country: US (occurrence: None)
  Receive Date: 20130228
  Receipt Date: 20130228
  Transmission Date: 20140127
  Serious: Yes (Other)
  Sender: FDA-Public Use
  Company Number: None

PATIENT
  Sex: Male
  Weight: 47.63 kg

DRUGS (1)
  1. LEVALBUTEROL [Suspect]
     Indication: ASTHMA
     Dates: start: 201301

REACTIONS (2)
  - Asthma [None]
  - Tremor [None]
